FAERS Safety Report 25657767 (Version 1)
Quarter: 2025Q3

REPORT INFORMATION
  Report Type: Spontaneous
  Country: US (occurrence: US)
  Receive Date: 20250808
  Receipt Date: 20250808
  Transmission Date: 20251021
  Serious: No
  Sender: RANBAXY
  Company Number: US-SUN PHARMACEUTICAL INDUSTRIES LTD-2025R1-502212

PATIENT
  Sex: Male

DRUGS (1)
  1. ODOMZO [Suspect]
     Active Substance: SONIDEGIB
     Indication: Basal cell carcinoma
     Route: 065
     Dates: start: 20241018

REACTIONS (5)
  - Alopecia [Unknown]
  - Influenza [Unknown]
  - Muscle spasms [Unknown]
  - Product dose omission issue [Unknown]
  - Therapy cessation [Unknown]
